FAERS Safety Report 5797059-6 (Version None)
Quarter: 2008Q2

REPORT INFORMATION
  Report Type: 
  Country: None (occurrence: None)
  Receive Date: 20080618
  Receipt Date: 20071113
  Transmission Date: 20081010
  Serious: Yes (Other)
  Sender: FDA-Public Use
  Company Number: 200716235US

PATIENT
  Sex: Female

DRUGS (8)
  1. LANTUS [Suspect]
     Indication: TYPE 2 DIABETES MELLITUS
     Dosage: 80 M QPM INJ
     Route: 042
     Dates: start: 20060101
  2. OPTICLIK [Suspect]
     Indication: TYPE 2 DIABETES MELLITUS
  3. XANAX [Concomitant]
  4. DULOXETINE HYDROCHLORIDE (CYMBALTA) [Concomitant]
  5. ZETIA [Concomitant]
  6. QUETIAPINE FUMARATE (SEROQUEL /01270902/) [Concomitant]
  7. LISINOPRIL [Concomitant]
  8. OMEPRAZOLE [Concomitant]

REACTIONS (6)
  - ALTERED STATE OF CONSCIOUSNESS [None]
  - BLOOD GLUCOSE INCREASED [None]
  - CHILLS [None]
  - DYSARTHRIA [None]
  - HYPERGLYCAEMIA [None]
  - HYPERHIDROSIS [None]
